FAERS Safety Report 10084726 (Version 1)
Quarter: 2014Q2

REPORT INFORMATION
  Report Type: Spontaneous
  Country: FR (occurrence: FR)
  Receive Date: 20140417
  Receipt Date: 20140417
  Transmission Date: 20141212
  Serious: Yes (Hospitalization)
  Sender: FDA-Public Use
  Company Number: FR-GLAXOSMITHKLINE-B0985160A

PATIENT
  Age: 68 Year
  Sex: Male

DRUGS (4)
  1. ZOPHREN [Suspect]
     Indication: OSTEITIS
     Dosage: 8MG THREE TIMES PER DAY
     Route: 048
     Dates: start: 20140207, end: 20140211
  2. ZYVOXID [Suspect]
     Indication: OSTEITIS
     Dosage: 600MG TWICE PER DAY
     Route: 048
     Dates: start: 20140208, end: 20140211
  3. INEXIUM [Suspect]
     Indication: PRODUCT USED FOR UNKNOWN INDICATION
     Route: 065
     Dates: start: 20140128, end: 20140222
  4. TAZOCILLINE [Suspect]
     Indication: OSTEITIS
     Route: 042
     Dates: start: 20140206, end: 20140211

REACTIONS (3)
  - Thrombocytopenia [Recovered/Resolved]
  - Off label use [Unknown]
  - Overdose [Unknown]
